FAERS Safety Report 25901254 (Version 1)
Quarter: 2025Q4

REPORT INFORMATION
  Report Type: Spontaneous
  Country: TH (occurrence: TH)
  Receive Date: 20251009
  Receipt Date: 20251009
  Transmission Date: 20260118
  Serious: Yes (Other)
  Sender: AMGEN
  Company Number: TH-AMGEN-THASP2025196965

PATIENT
  Age: 55 Year
  Sex: Male

DRUGS (4)
  1. BEVACIZUMAB [Suspect]
     Active Substance: BEVACIZUMAB
     Indication: Hepatocellular carcinoma
     Dosage: 15 MILLIGRAM/KILOGRAM, Q3WK (OVER 90 MIN) (FOR 2 MONTHS)
     Route: 040
  2. ATEZOLIZUMAB [Concomitant]
     Active Substance: ATEZOLIZUMAB
     Indication: Hepatocellular carcinoma
     Dosage: 1200 MILLIGRAM (OVER 60 MIN) (FOR 2 MONTHS)
     Route: 040
  3. SORAFENIB [Concomitant]
     Active Substance: SORAFENIB
     Indication: Hepatocellular carcinoma
     Dosage: 400 MILLIGRAM, BID
     Route: 048
  4. REGORAFENIB [Concomitant]
     Active Substance: REGORAFENIB
     Indication: Hepatocellular carcinoma

REACTIONS (2)
  - Hepatocellular carcinoma [Unknown]
  - Off label use [Unknown]
